FAERS Safety Report 24067731 (Version 3)
Quarter: 2024Q3

REPORT INFORMATION
  Report Type: Spontaneous
  Country: FR (occurrence: FR)
  Receive Date: 20240710
  Receipt Date: 20240814
  Transmission Date: 20241016
  Serious: Yes (Other)
  Sender: GLAXOSMITHKLINE
  Company Number: FR-GSKCCFEMEA-Case-02017513_AE-85128

PATIENT

DRUGS (4)
  1. VALACYCLOVIR HYDROCHLORIDE [Suspect]
     Active Substance: VALACYCLOVIR HYDROCHLORIDE
     Indication: Ophthalmic herpes zoster
     Dosage: 500 MG
  2. VALACYCLOVIR HYDROCHLORIDE [Suspect]
     Active Substance: VALACYCLOVIR HYDROCHLORIDE
     Dosage: 1 G, TID
  3. DEXAMETHASONE [Concomitant]
     Active Substance: DEXAMETHASONE
     Indication: Product used for unknown indication
     Dosage: UNK, 3 INJECTIONS
  4. ZOVIRAX [Concomitant]
     Active Substance: ACYCLOVIR
     Indication: Product used for unknown indication
     Dosage: 1 G, IN THE MORNING IN THE AFTERNOON
     Route: 048

REACTIONS (5)
  - Anuria [Unknown]
  - Micturition disorder [Unknown]
  - Corneal lesion [Unknown]
  - Blood creatinine increased [Unknown]
  - Malaise [Unknown]

NARRATIVE: CASE EVENT DATE: 20240601
